FAERS Safety Report 5350235-9 (Version None)
Quarter: 2007Q2

REPORT INFORMATION
  Report Type: 
  Country: None (occurrence: None)
  Receive Date: 20070521
  Receipt Date: 20070319
  Transmission Date: 20071010
  Serious: No
  Sender: FDA-Public Use
  Company Number: WAES 0703USA03635

PATIENT
  Age: 81 Year
  Sex: Male

DRUGS (7)
  1. JANUVIA [Suspect]
     Dosage: 50 MG/DAILY/PO
     Route: 048
     Dates: start: 20070305, end: 20070301
  2. ACTOS [Concomitant]
  3. COZAAR [Concomitant]
  4. ASPIRIN [Concomitant]
  5. DILTIAZEM HYDROCHLORIDE [Concomitant]
  6. INSULIN [Concomitant]
  7. NITROGLYCERIN [Concomitant]

REACTIONS (2)
  - AGGRESSION [None]
  - SCREAMING [None]
